FAERS Safety Report 17521606 (Version 1)
Quarter: 2020Q1

REPORT INFORMATION
  Report Type: Spontaneous
  Country: US (occurrence: US)
  Receive Date: 20200310
  Receipt Date: 20200310
  Transmission Date: 20200409
  Serious: Yes (Other)
  Sender: FDA-Public Use
  Company Number: US-PFIZER INC-2020104411

PATIENT
  Age: 64 Year
  Sex: Female

DRUGS (1)
  1. IBRANCE [Suspect]
     Active Substance: PALBOCICLIB
     Dosage: UNK

REACTIONS (11)
  - Urticaria [Unknown]
  - Nausea [Unknown]
  - Blood count abnormal [Unknown]
  - Vomiting [Unknown]
  - Gastrooesophageal reflux disease [Unknown]
  - Epistaxis [Unknown]
  - Weight decreased [Unknown]
  - Impaired driving ability [Unknown]
  - Diarrhoea [Unknown]
  - Fatigue [Unknown]
  - Oral candidiasis [Unknown]
